FAERS Safety Report 18896351 (Version 1)
Quarter: 2021Q1

REPORT INFORMATION
  Report Type: Spontaneous
  Country: FR (occurrence: FR)
  Receive Date: 20210215
  Receipt Date: 20210215
  Transmission Date: 20210420
  Serious: Yes (Other)
  Sender: FDA-Public Use
  Company Number: FR-PFIZER INC-2021126146

PATIENT
  Age: 23 Year
  Sex: Male

DRUGS (2)
  1. RIVOTRIL [Suspect]
     Active Substance: CLONAZEPAM
     Dosage: 7 DF, SINGLE
     Route: 048
     Dates: start: 20201027
  2. LYRICA [Suspect]
     Active Substance: PREGABALIN
     Dosage: 7 DF, SINGLE
     Route: 048
     Dates: start: 20201027

REACTIONS (2)
  - Drug abuse [Unknown]
  - Somnolence [Recovered/Resolved]

NARRATIVE: CASE EVENT DATE: 20201027
